FAERS Safety Report 10399927 (Version 2)
Quarter: 2014Q4

REPORT INFORMATION
  Report Type: Spontaneous
  Country: GB (occurrence: GB)
  Receive Date: 20140821
  Receipt Date: 20141024
  Transmission Date: 20150528
  Serious: Yes (Other)
  Sender: FDA-Public Use
  Company Number: GB-GLAXOSMITHKLINE-B1024722A

PATIENT
  Sex: Female
  Weight: 127.4 kg

DRUGS (2)
  1. RELVAR ELLIPTA [Suspect]
     Active Substance: FLUTICASONE FUROATE\VILANTEROL TRIFENATATE
     Indication: ASTHMA
     Route: 065
  2. PARACETAMOL [Concomitant]
     Active Substance: ACETAMINOPHEN
     Dosage: 2 TABLETS, QID
     Dates: start: 20140916

REACTIONS (9)
  - Dizziness [Unknown]
  - Abdominal pain upper [Unknown]
  - Rash [Unknown]
  - Headache [Unknown]
  - Malaise [Unknown]
  - Feeding disorder [Unknown]
  - Swelling face [Recovered/Resolved]
  - Haematuria [Recovered/Resolved]
  - Oral discomfort [Unknown]

NARRATIVE: CASE EVENT DATE: 20140624
